FAERS Safety Report 10032446 (Version 2)
Quarter: 2014Q2

REPORT INFORMATION
  Report Type: Spontaneous
  Country: IN (occurrence: None)
  Receive Date: 20140320
  Receipt Date: 20140408
  Transmission Date: 20141212
  Serious: Yes (Other)
  Sender: FDA-Public Use
  Company Number: AUR-APL-2014-03136

PATIENT
  Age: 50 Year
  Sex: Female

DRUGS (5)
  1. METFORMIN [Suspect]
     Indication: BLOOD GLUCOSE ABNORMAL
  2. RAMIPRIL [Suspect]
     Indication: PRODUCT USED FOR UNKNOWN INDICATION
  3. TORSEMIDE [Suspect]
     Indication: PRODUCT USED FOR UNKNOWN INDICATION
  4. GLIMEPIRIDE (GLIMEPIRIDE) [Suspect]
     Indication: BLOOD GLUCOSE ABNORMAL
  5. ATORVASTATIN (ATORVASTATIN) [Suspect]
     Indication: PRODUCT USED FOR UNKNOWN INDICATION

REACTIONS (8)
  - Dyspnoea [None]
  - Pulmonary hypertension [None]
  - Dizziness [None]
  - Hemiparesis [None]
  - Sleep apnoea syndrome [None]
  - Depressed level of consciousness [None]
  - Atrial fibrillation [None]
  - Heart rate increased [None]
